FAERS Safety Report 20732651 (Version 6)
Quarter: 2022Q4

REPORT INFORMATION
  Report Type: Report from Study
  Country: US (occurrence: US)
  Receive Date: 20220420
  Receipt Date: 20221229
  Transmission Date: 20230113
  Serious: Yes (Other)
  Sender: FDA-Public Use
  Company Number: US-NOVARTISPH-NVSC2022US089885

PATIENT
  Sex: Male
  Weight: 99.79 kg

DRUGS (2)
  1. COSENTYX [Suspect]
     Active Substance: SECUKINUMAB
     Indication: Psoriasis
     Dosage: 150 MG, Q2W (ONCE EVERY TWO WEEKS)
     Route: 042
  2. COSENTYX [Suspect]
     Active Substance: SECUKINUMAB
     Dosage: 300 MG/KG, QMO
     Route: 030

REACTIONS (19)
  - Suicidal ideation [Recovered/Resolved]
  - Crohn^s disease [Unknown]
  - Pain [Not Recovered/Not Resolved]
  - Arthritis [Not Recovered/Not Resolved]
  - Bacterial infection [Unknown]
  - Decreased immune responsiveness [Unknown]
  - Dysgraphia [Unknown]
  - Blood disorder [Unknown]
  - Depressed mood [Unknown]
  - Movement disorder [Unknown]
  - Dry mouth [Unknown]
  - Insomnia [Unknown]
  - Weight decreased [Unknown]
  - Tooth fracture [Unknown]
  - Psoriasis [Unknown]
  - Rebound psoriasis [Unknown]
  - Incorrect dose administered [Unknown]
  - Incorrect route of product administration [Unknown]
  - Drug ineffective [Unknown]
